FAERS Safety Report 7231061-2 (Version None)
Quarter: 2011Q1

REPORT INFORMATION
  Report Type: 
  Country: None (occurrence: None)
  Receive Date: 20110118
  Receipt Date: 20110107
  Transmission Date: 20110831
  Serious: Yes (Other)
  Sender: FDA-Public Use
  Company Number: CA-JNJFOC-20110102491

PATIENT
  Sex: Female
  Weight: 38.8 kg

DRUGS (6)
  1. FOLIC ACID [Concomitant]
  2. IMURAN [Concomitant]
  3. FLAGYL [Concomitant]
  4. REMICADE [Suspect]
     Indication: CROHN'S DISEASE
     Dosage: 49 INFUSIONS TOTAL
     Route: 042
  5. MINESTRIN [Concomitant]
  6. DIDROCAL [Concomitant]

REACTIONS (6)
  - PYREXIA [None]
  - CHILLS [None]
  - POST PROCEDURAL DISCOMFORT [None]
  - STOMA CARE [None]
  - ABDOMINAL PAIN UPPER [None]
  - PROCEDURAL SITE REACTION [None]
